FAERS Safety Report 14169458 (Version 1)
Quarter: 2017Q4

REPORT INFORMATION
  Report Type: Spontaneous
  Country: US (occurrence: US)
  Receive Date: 20171107
  Receipt Date: 20171107
  Transmission Date: 20180321
  Serious: Yes (Hospitalization, Other)
  Sender: FDA-Public Use
  Company Number: None

PATIENT
  Age: 45 Year
  Weight: 96.3 kg

DRUGS (1)
  1. GENERIC LEVAQUIN [Suspect]
     Active Substance: LEVOFLOXACIN
     Indication: LOWER RESPIRATORY TRACT INFECTION

REACTIONS (2)
  - Rotator cuff syndrome [None]
  - Tendon rupture [None]

NARRATIVE: CASE EVENT DATE: 20170812
